FAERS Safety Report 6202121-X (Version None)
Quarter: 2009Q2

REPORT INFORMATION
  Report Type: 
  Country: None (occurrence: None)
  Receive Date: 20090520
  Receipt Date: 20090509
  Transmission Date: 20091009
  Serious: No
  Sender: FDA-Public Use
  Company Number: 20096754

PATIENT
  Sex: Female

DRUGS (1)
  1. LIORESAL [Suspect]
     Indication: MUSCLE SPASTICITY
     Dosage: 2957 MCG, DAILY, INTRATHECAL
     Route: 037

REACTIONS (6)
  - CATHETER RELATED COMPLICATION [None]
  - DISCOMFORT [None]
  - MOTOR DYSFUNCTION [None]
  - MUSCLE SPASTICITY [None]
  - PYREXIA [None]
  - TACHYCARDIA [None]
